FAERS Safety Report 16567260 (Version 1)
Quarter: 2019Q3

REPORT INFORMATION
  Report Type: Spontaneous
  Country: US (occurrence: US)
  Receive Date: 20190712
  Receipt Date: 20190712
  Transmission Date: 20191004
  Serious: No
  Sender: FDA-Public Use
  Company Number: US-ASTRAZENECA-2019SE89098

PATIENT
  Sex: Male

DRUGS (3)
  1. BYDUREON BCISE [Suspect]
     Active Substance: EXENATIDE
     Route: 058
  2. INSULIN [Concomitant]
     Active Substance: INSULIN NOS
  3. INSULIN [Concomitant]
     Active Substance: INSULIN NOS

REACTIONS (2)
  - Intentional product misuse [Unknown]
  - Blood glucose abnormal [Unknown]
